FAERS Safety Report 12735324 (Version 1)
Quarter: 2016Q3

REPORT INFORMATION
  Report Type: Spontaneous
  Country: FR (occurrence: FR)
  Receive Date: 20160913
  Receipt Date: 20160913
  Transmission Date: 20161109
  Serious: Yes (Other)
  Sender: FDA-Public Use
  Company Number: FR-009507513-1609FRA000342

PATIENT
  Sex: Female

DRUGS (2)
  1. MIRENA [Concomitant]
     Active Substance: LEVONORGESTREL
     Dosage: UNK
  2. ETONOGESTREL IMPLANT- UNKNOWN [Suspect]
     Active Substance: ETONOGESTREL
     Dosage: 1 DF, UNK
     Route: 059

REACTIONS (2)
  - Complication associated with device [Not Recovered/Not Resolved]
  - Breast cancer [Unknown]
